FAERS Safety Report 20058648 (Version 1)
Quarter: 2021Q4

REPORT INFORMATION
  Report Type: Spontaneous
  Country: US (occurrence: None)
  Receive Date: 20211111
  Receipt Date: 20211111
  Transmission Date: 20220304
  Serious: Yes (Hospitalization)
  Sender: FDA-Public Use
  Company Number: None

PATIENT
  Sex: Female
  Weight: 73.9 kg

DRUGS (3)
  1. TAXOL [Suspect]
     Active Substance: PACLITAXEL
  2. PERTUZUMAB [Suspect]
     Active Substance: PERTUZUMAB
  3. TRASTUZUMAB (HERCEPTIN) [Concomitant]

REACTIONS (4)
  - Dyspnoea [None]
  - Fatigue [None]
  - Sinus tachycardia [None]
  - Haemoglobin decreased [None]

NARRATIVE: CASE EVENT DATE: 20211102
